FAERS Safety Report 10734409 (Version 2)
Quarter: 2015Q1

REPORT INFORMATION
  Report Type: Report from Study
  Country: US (occurrence: US)
  Receive Date: 20150123
  Receipt Date: 20150123
  Transmission Date: 20150721
  Serious: Yes (Hospitalization)
  Sender: FDA-Public Use
  Company Number: US-AMGEN INC.-2014-2268

PATIENT
  Age: 45 Year
  Sex: Female

DRUGS (1)
  1. KYPROLIS [Suspect]
     Active Substance: CARFILZOMIB
     Indication: PRODUCT USED FOR UNKNOWN INDICATION
     Dates: start: 20131023, end: 20140902

REACTIONS (5)
  - Dyspnoea [Recovered/Resolved]
  - Disease progression [Unknown]
  - Cough [Recovered/Resolved]
  - Pyrexia [Recovered/Resolved]
  - Chills [Recovered/Resolved]

NARRATIVE: CASE EVENT DATE: 20141001
